FAERS Safety Report 9178462 (Version 1)
Quarter: 2012Q4

REPORT INFORMATION
  Report Type: 
  Country: US (occurrence: US)
  Receive Date: 20121029
  Receipt Date: 20121029
  Transmission Date: 20130627
  Serious: Yes (Hospitalization, Other)
  Sender: FDA-Public Use
  Company Number: US-PFIZER INC-2012266507

PATIENT
  Sex: Female
  Weight: 77.1 kg

DRUGS (12)
  1. REVATIO [Suspect]
     Indication: PULMONARY HYPERTENSION
     Dosage: 20mg two or three times a day
     Dates: end: 2009
  2. REVATIO [Suspect]
     Indication: INTERSTITIAL LUNG DISEASE
     Dosage: 20 mg, 3x/day
     Dates: start: 201208
  3. REVATIO [Suspect]
     Indication: RAYNAUD^S DISEASE
  4. REVATIO [Suspect]
     Indication: SCLERODERMA
  5. REVATIO [Suspect]
     Indication: PROMOTION OF PERIPHERAL CIRCULATION
  6. VIAGRA [Suspect]
     Indication: PROMOTION OF PERIPHERAL CIRCULATION
     Dosage: UNK
     Route: 048
     Dates: start: 201208, end: 201208
  7. CELLCEPT [Suspect]
     Indication: SCLERODERMA
     Dosage: 1500 mg, Daily
     Dates: start: 2011, end: 201202
  8. CELLCEPT [Suspect]
     Indication: RAYNAUD^S DISEASE
     Dosage: 1500 mg, daily
     Dates: start: 201207
  9. CELLCEPT [Suspect]
     Indication: SKIN TIGHTNESS
  10. LETAIRIS [Concomitant]
     Indication: PULMONARY HYPERTENSION
     Dosage: 10 mg, daily
     Dates: start: 2009
  11. LETAIRIS [Concomitant]
     Indication: SCLERODERMA
  12. LETAIRIS [Concomitant]
     Indication: RAYNAUD^S DISEASE

REACTIONS (5)
  - Skin ulcer [Unknown]
  - Cardiopulmonary failure [Unknown]
  - Lower respiratory tract infection viral [Unknown]
  - Headache [Unknown]
  - Off label use [Unknown]
